FAERS Safety Report 17376886 (Version 2)
Quarter: 2020Q2

REPORT INFORMATION
  Report Type: Report from Study
  Country: None (occurrence: US)
  Receive Date: 20200206
  Receipt Date: 20200408
  Transmission Date: 20200713
  Serious: Yes (Hospitalization, Other)
  Sender: FDA-Public Use
  Company Number: US-ABBVIE-19K-163-3159606-00

PATIENT
  Sex: Male

DRUGS (2)
  1. IMBRUVICA [Suspect]
     Active Substance: IBRUTINIB
     Route: 048
  2. IMBRUVICA [Suspect]
     Active Substance: IBRUTINIB
     Indication: CHRONIC LYMPHOCYTIC LEUKAEMIA
     Dosage: 420 MG, QD
     Route: 048
     Dates: start: 20180526

REACTIONS (6)
  - Knee arthroplasty [Not Recovered/Not Resolved]
  - Fasciotomy [Unknown]
  - Haemorrhage [Unknown]
  - Vascular pseudoaneurysm [Unknown]
  - Limb operation [Unknown]
  - Compartment syndrome [Unknown]
